FAERS Safety Report 4935039-0 (Version None)
Quarter: 2006Q1

REPORT INFORMATION
  Report Type: 
  Country: None (occurrence: None)
  Receive Date: 20060303
  Receipt Date: 20060303
  Transmission Date: 20060701
  Serious: Yes (Life-Threatening, Hospitalization)
  Sender: FDA-Public Use
  Company Number: None

PATIENT
  Sex: Female
  Weight: 53 kg

DRUGS (5)
  1. BEVACIZUMAB 25 MG/ML GENETECH [Suspect]
     Indication: FALLOPIAN TUBE CANCER
     Dosage: 795 MG EVERY 3 WEEKS IV BOLUS
     Route: 040
     Dates: start: 20050817, end: 20060112
  2. BEVACIZUMAB 25 MG/ML GENETECH [Suspect]
     Indication: RECURRENT CANCER
     Dosage: 795 MG EVERY 3 WEEKS IV BOLUS
     Route: 040
     Dates: start: 20050817, end: 20060112
  3. TINZAPARIN 20,000 UNITS/ML PHARMION [Suspect]
     Indication: VENOUS THROMBOSIS
     Dosage: 9000 UNITS DAILY SQ
     Route: 058
     Dates: start: 20051201, end: 20060123
  4. GEMCITABINE [Concomitant]
  5. DEXAMETHASONE [Concomitant]

REACTIONS (2)
  - BRAIN STEM HAEMORRHAGE [None]
  - COORDINATION ABNORMAL [None]
